FAERS Safety Report 5372424-X (Version None)
Quarter: 2007Q2

REPORT INFORMATION
  Report Type: 
  Country: None (occurrence: None)
  Receive Date: 20070615
  Receipt Date: 20070212
  Transmission Date: 20071010
  Serious: Yes (Other)
  Sender: FDA-Public Use
  Company Number: 200710571US

PATIENT
  Age: 68 Year
  Sex: Female

DRUGS (14)
  1. LANTUS [Suspect]
     Indication: DIABETES MELLITUS NON-INSULIN-DEPENDENT
     Dosage: 10 U HS
     Dates: start: 20070117, end: 20070117
  2. LANTUS [Suspect]
     Indication: DIABETES MELLITUS NON-INSULIN-DEPENDENT
     Dosage: 8 U HS
     Dates: start: 20070118, end: 20070118
  3. LANTUS [Suspect]
     Indication: DIABETES MELLITUS NON-INSULIN-DEPENDENT
     Dosage: 10 U HS
     Dates: start: 20070119, end: 20070119
  4. LANTUS [Suspect]
     Indication: DIABETES MELLITUS NON-INSULIN-DEPENDENT
     Dosage: 7 U HS
     Dates: start: 20070120, end: 20070120
  5. LANTUS [Suspect]
     Indication: DIABETES MELLITUS NON-INSULIN-DEPENDENT
     Dosage: 7 U QAM
     Dates: start: 20070122
  6. OPTICLIK [Suspect]
     Dates: start: 20070117
  7. AVANDIA [Concomitant]
  8. MONOPRIL [Concomitant]
  9. ZOCOR [Concomitant]
  10. ZETIA [Concomitant]
  11. MULTIVITAMIN [Concomitant]
  12. ASCORBIC ACID (VITAMIN C) [Concomitant]
  13. MAGNESIUM SULFATE [Concomitant]
  14. CALCIUM CHLORIDE [Concomitant]

REACTIONS (7)
  - BLOOD GLUCOSE INCREASED [None]
  - COLD SWEAT [None]
  - DRUG INEFFECTIVE [None]
  - HYPERHIDROSIS [None]
  - HYPOGLYCAEMIA [None]
  - INJECTION SITE HAEMORRHAGE [None]
  - NERVOUSNESS [None]
